FAERS Safety Report 14582603 (Version 1)
Quarter: 2018Q1

REPORT INFORMATION
  Report Type: Spontaneous
  Country: NL (occurrence: NL)
  Receive Date: 20180228
  Receipt Date: 20180228
  Transmission Date: 20180509
  Serious: Yes (Other)
  Sender: FDA-Public Use
  Company Number: NL-TEVA-2018-NL-861371

PATIENT
  Age: 86 Year
  Sex: Female

DRUGS (1)
  1. OMEPRAZOLE GASTRO-RESISTANT CAPSULE, 40 MG [Suspect]
     Active Substance: OMEPRAZOLE
     Indication: GASTRIC DISORDER
     Dosage: ONCE A DAY ONE CAPSULE
     Route: 065
     Dates: start: 20171129, end: 20171210

REACTIONS (1)
  - Polyneuropathy [Recovered/Resolved]

NARRATIVE: CASE EVENT DATE: 20171209
